FAERS Safety Report 7236630-1 (Version None)
Quarter: 2011Q1

REPORT INFORMATION
  Report Type: 
  Country: None (occurrence: None)
  Receive Date: 20110112
  Receipt Date: 20101229
  Transmission Date: 20110831
  Serious: Yes (Other)
  Sender: FDA-Public Use
  Company Number: US-1184538

PATIENT
  Age: 29 Year
  Sex: Male

DRUGS (1)
  1. TOBRADEX [Suspect]
     Indication: CONJUNCTIVITIS
     Dosage: 1 GTT QD OU OPHTHALMIC
     Route: 047

REACTIONS (5)
  - VITREOUS FLOATERS [None]
  - VISUAL FIELD DEFECT [None]
  - VISUAL ACUITY REDUCED [None]
  - GLAUCOMA [None]
  - PHOTOPHOBIA [None]
